FAERS Safety Report 25608919 (Version 1)
Quarter: 2025Q3

REPORT INFORMATION
  Report Type: Report from Study
  Country: GB (occurrence: GB)
  Receive Date: 20250726
  Receipt Date: 20250726
  Transmission Date: 20251020
  Serious: Yes (Hospitalization)
  Sender: CELLTRION
  Company Number: GB-CELLTRION INC.-2025GB025186

PATIENT

DRUGS (1)
  1. ADALIMUMAB-AATY [Suspect]
     Active Substance: ADALIMUMAB-AATY
     Indication: Juvenile idiopathic arthritis
     Dosage: 2 X YUFLYMA 40MG FOR INJECTION PENS /INJECT ONE PRE-FILLED PEN EVERY TWO WEEKS
     Route: 058
     Dates: start: 202504

REACTIONS (5)
  - Heart rate increased [Unknown]
  - Chills [Unknown]
  - Heart rate irregular [Unknown]
  - Rash [Unknown]
  - Tremor [Unknown]
